FAERS Safety Report 8521740-9 (Version None)
Quarter: 2012Q3

REPORT INFORMATION
  Report Type: 
  Country: None (occurrence: None)
  Receive Date: 20120719
  Receipt Date: 20120717
  Transmission Date: 20120928
  Serious: Yes (Death, Other)
  Sender: FDA-Public Use
  Company Number: PHHY2012SE061229

PATIENT
  Age: 38 Year
  Sex: Female

DRUGS (2)
  1. ALCOHOL [Suspect]
  2. OXAZEPAM [Suspect]

REACTIONS (5)
  - DEATH [None]
  - HYPOTHERMIA [None]
  - OVERDOSE [None]
  - ASPIRATION [None]
  - DEPRESSED LEVEL OF CONSCIOUSNESS [None]
